FAERS Safety Report 7949354-X (Version None)
Quarter: 2011Q4

REPORT INFORMATION
  Report Type: 
  Country: None (occurrence: None)
  Receive Date: 20111130
  Receipt Date: 20111122
  Transmission Date: 20120403
  Serious: Yes (Hospitalization, Disabling)
  Sender: FDA-Public Use
  Company Number: US-GLAXOSMITHKLINE-A0792970A

PATIENT
  Age: 56 Year
  Sex: Male

DRUGS (2)
  1. AVANDIA [Suspect]
     Indication: TYPE 2 DIABETES MELLITUS
     Dosage: 8MG PER DAY
     Route: 048
     Dates: start: 20060101, end: 20070101
  2. AVANDARYL [Suspect]
     Indication: DIABETES MELLITUS

REACTIONS (6)
  - FATIGUE [None]
  - CEREBROVASCULAR ACCIDENT [None]
  - HEADACHE [None]
  - FEELING DRUNK [None]
  - THERMAL BURN [None]
  - DYSPHAGIA [None]
